FAERS Safety Report 7619506-7 (Version None)
Quarter: 2011Q3

REPORT INFORMATION
  Report Type: 
  Country: None (occurrence: None)
  Receive Date: 20110719
  Receipt Date: 20110708
  Transmission Date: 20111222
  Serious: Yes (Other)
  Sender: FDA-Public Use
  Company Number: CH-AMGEN-CHESP2011031778

PATIENT
  Age: 46 Year
  Sex: Female
  Weight: 65 kg

DRUGS (9)
  1. TRAMADOL HCL [Concomitant]
     Dosage: 150 MG, 2X/DAY
     Route: 048
     Dates: start: 20031219
  2. ARAVA [Concomitant]
     Dosage: 20 MG, 1X/DAY
     Route: 048
     Dates: start: 20021217
  3. ENBREL [Suspect]
     Indication: RHEUMATOID ARTHRITIS
     Dosage: 50 MG, WEEKLY
     Dates: start: 20000811, end: 20010416
  4. DICLOFENAC [Concomitant]
     Dosage: 150 MG, 1X/DAY
     Route: 048
     Dates: start: 20050301
  5. REMICADE [Concomitant]
     Dosage: 200 MG EVERY 8 WEEKS
     Route: 042
     Dates: start: 20010424, end: 20051206
  6. ENBREL [Suspect]
     Dosage: UNK
     Dates: start: 20110531, end: 20110614
  7. ENBREL [Suspect]
     Dosage: 50 MG, WEEKLY
     Dates: start: 20061021
  8. ENALAPRIL MALEATE [Concomitant]
     Dosage: 20 MG, 1X/DAY
     Route: 048
     Dates: start: 20040716
  9. MABTHERA [Concomitant]
     Dosage: 500 UNK, UNK
     Dates: start: 20060208, end: 20060222

REACTIONS (8)
  - SCIATICA [None]
  - DERMATITIS CONTACT [None]
  - INJECTION SITE PAIN [None]
  - INTERVERTEBRAL DISC PROTRUSION [None]
  - ABDOMINAL PAIN [None]
  - LUMBAR SPINAL STENOSIS [None]
  - FOOT DEFORMITY [None]
  - HYPERTENSION [None]
